FAERS Safety Report 5581865-7 (Version None)
Quarter: 2008Q1

REPORT INFORMATION
  Report Type: 
  Country: None (occurrence: None)
  Receive Date: 20080104
  Receipt Date: 20071230
  Transmission Date: 20080703
  Serious: Yes (Death, Hospitalization, Other)
  Sender: FDA-Public Use
  Company Number: DE-ELI_LILLY_AND_COMPANY-DE200801000004

PATIENT
  Sex: Male
  Weight: 84 kg

DRUGS (4)
  1. GEMZAR [Suspect]
     Indication: PANCREATIC CARCINOMA
     Dosage: 2 G, UNK
     Route: 042
     Dates: start: 20070619, end: 20071113
  2. ZOFRAN [Concomitant]
     Indication: VOMITING
     Dosage: 4 MG, UNK
     Route: 042
     Dates: start: 20070619, end: 20071113
  3. PANTOPRAZOLE SODIUM [Concomitant]
     Indication: GASTRIC PH DECREASED
     Dosage: 40 MG, DAILY (1/D)
     Route: 048
     Dates: start: 20071127
  4. OSYROL-LASIX [Concomitant]
     Indication: POLYURIA
     Dosage: UNK, UNKNOWN
     Route: 065
     Dates: start: 20070925, end: 20071202

REACTIONS (7)
  - CHILLS [None]
  - DYSPNOEA EXERTIONAL [None]
  - OEDEMA [None]
  - PNEUMONITIS [None]
  - PULMONARY CONGESTION [None]
  - PULMONARY FIBROSIS [None]
  - PYREXIA [None]
